FAERS Safety Report 11909517 (Version 1)
Quarter: 2016Q1

REPORT INFORMATION
  Report Type: Spontaneous
  Country: US (occurrence: US)
  Receive Date: 20160112
  Receipt Date: 20160112
  Transmission Date: 20160526
  Serious: No
  Sender: FDA-Public Use
  Company Number: US-ELI_LILLY_AND_COMPANY-US201601002738

PATIENT
  Age: 24 Year
  Sex: Male

DRUGS (4)
  1. ZYPREXA [Suspect]
     Active Substance: OLANZAPINE
     Dosage: 5 MG, QD
     Route: 065
     Dates: start: 2015
  2. ZYPREXA [Suspect]
     Active Substance: OLANZAPINE
     Indication: HALLUCINATION
     Dosage: 20 MG, QD
     Route: 065
     Dates: start: 2014
  3. ZYPREXA [Suspect]
     Active Substance: OLANZAPINE
     Dosage: 2.5 MG, EVERY OTHER DAY
     Route: 065
     Dates: start: 2015, end: 201512
  4. ZYPREXA [Suspect]
     Active Substance: OLANZAPINE
     Dosage: 7.5 MG, QD
     Route: 065
     Dates: start: 2015

REACTIONS (7)
  - Decreased activity [Recovering/Resolving]
  - Communication disorder [Recovering/Resolving]
  - Tachyphrenia [Recovering/Resolving]
  - Off label use [Recovered/Resolved]
  - Insomnia [Recovering/Resolving]
  - Disturbance in attention [Recovering/Resolving]
  - Drug withdrawal syndrome [Recovering/Resolving]
